FAERS Safety Report 10064312 (Version 1)
Quarter: 2014Q2

REPORT INFORMATION
  Report Type: Spontaneous
  Country: US (occurrence: None)
  Receive Date: 20140407
  Receipt Date: 20140407
  Transmission Date: 20141212
  Serious: Yes (Life-Threatening)
  Sender: FDA-Public Use
  Company Number: None

PATIENT
  Age: 54 Year
  Sex: Female
  Weight: 95.26 kg

DRUGS (1)
  1. KRYSTEXXA [Suspect]
     Indication: GOUTY ARTHRITIS
     Dosage: INTO A VEIN
     Route: 042
     Dates: start: 20140403, end: 20140403

REACTIONS (1)
  - Anaphylactic reaction [None]
